FAERS Safety Report 18468233 (Version 2)
Quarter: 2020Q4

REPORT INFORMATION
  Report Type: Spontaneous
  Country: US (occurrence: US)
  Receive Date: 20201105
  Receipt Date: 20201210
  Transmission Date: 20210114
  Serious: Yes (Hospitalization, Other)
  Sender: FDA-Public Use
  Company Number: US-PFIZER INC-2020427593

PATIENT
  Age: 67 Year
  Sex: Male
  Weight: 81.63 kg

DRUGS (7)
  1. LISINOPRIL. [Concomitant]
     Active Substance: LISINOPRIL
     Dosage: UNK
  2. METOPROLOL TARTRATE. [Concomitant]
     Active Substance: METOPROLOL TARTRATE
     Dosage: UNK
  3. MELATONIN [Concomitant]
     Active Substance: MELATONIN
     Dosage: UNK
  4. TYLENOL [Concomitant]
     Active Substance: ACETAMINOPHEN
     Dosage: UNK
  5. INLYTA [Suspect]
     Active Substance: AXITINIB
     Indication: RENAL CELL CARCINOMA
     Dosage: 5 MG, 2X/DAY [TWICE DAILY]
     Route: 048
     Dates: start: 20201021
  6. DIPHENHYDRAMINE. [Concomitant]
     Active Substance: DIPHENHYDRAMINE
     Dosage: UNK
  7. ENOXAPARIN [Concomitant]
     Active Substance: ENOXAPARIN
     Dosage: UNK

REACTIONS (4)
  - Internal haemorrhage [Unknown]
  - Decreased appetite [Unknown]
  - Fatigue [Not Recovered/Not Resolved]
  - Asthenia [Not Recovered/Not Resolved]
